FAERS Safety Report 23309499 (Version 2)
Quarter: 2023Q4

REPORT INFORMATION
  Report Type: Spontaneous
  Country: US (occurrence: US)
  Receive Date: 20231218
  Receipt Date: 20231219
  Transmission Date: 20240110
  Serious: No
  Sender: FDA-Public Use
  Company Number: US-PFIZER INC-PV202300089045

PATIENT
  Age: 69 Year
  Sex: Female

DRUGS (1)
  1. LORBRENA [Suspect]
     Active Substance: LORLATINIB
     Dosage: 75 MG, DAILY (25MG TABLET-TAKE 3 TABLETS BY MOUTH DAILY)
     Route: 048

REACTIONS (1)
  - Speech disorder [Unknown]
